FAERS Safety Report 18609430 (Version 1)
Quarter: 2020Q4

REPORT INFORMATION
  Report Type: Spontaneous
  Country: US (occurrence: US)
  Receive Date: 20201214
  Receipt Date: 20201214
  Transmission Date: 20210114
  Serious: Yes (Hospitalization, Other)
  Sender: FDA-Public Use
  Company Number: US-AUROBINDO-AUR-APL-2020-060091

PATIENT
  Age: 2 Month
  Sex: Female
  Weight: 2.8 kg

DRUGS (2)
  1. EPINEPHRINE. [Suspect]
     Active Substance: EPINEPHRINE
     Indication: SPINAL ANAESTHESIA
     Dosage: 1 DOSAGE FORM (1 TOTAL) 1:200,000
     Route: 008
  2. BUPIVACAINE HYDROCHLORIDE INJECTION USP 0.5% (5 MG/ML) [Suspect]
     Active Substance: BUPIVACAINE HYDROCHLORIDE
     Indication: SPINAL ANAESTHESIA
     Dosage: 3 MILLIGRAM (1 TOTAL)
     Route: 008

REACTIONS (2)
  - Areflexia [Recovered/Resolved]
  - Delayed recovery from anaesthesia [Recovered/Resolved]
